FAERS Safety Report 8186273-0 (Version None)
Quarter: 2012Q1

REPORT INFORMATION
  Report Type: 
  Country: None (occurrence: None)
  Receive Date: 20120306
  Receipt Date: 20120227
  Transmission Date: 20120608
  Serious: Yes (Other)
  Sender: FDA-Public Use
  Company Number: US-BAYER-2012-019967

PATIENT
  Sex: Female

DRUGS (2)
  1. MIRENA [Suspect]
     Dosage: 20 MCG/24HR, CONT
     Dates: start: 20090201
  2. MIRENA [Suspect]
     Indication: PRODUCT USED FOR UNKNOWN INDICATION
     Dosage: 20 MCG/24HR, CONT
     Dates: start: 20080501, end: 20080701

REACTIONS (5)
  - AMENORRHOEA [None]
  - VAGINAL HAEMORRHAGE [None]
  - MOOD ALTERED [None]
  - INFLUENZA LIKE ILLNESS [None]
  - DEVICE EXPULSION [None]
